FAERS Safety Report 5768211-0 (Version None)
Quarter: 2008Q2

REPORT INFORMATION
  Report Type: 
  Country: None (occurrence: None)
  Receive Date: 20080612
  Receipt Date: 20080605
  Transmission Date: 20081010
  Serious: Yes (Other)
  Sender: FDA-Public Use
  Company Number: JP-MERCK-0805USA05750

PATIENT
  Age: 79 Year
  Sex: Female

DRUGS (6)
  1. ZETIA [Suspect]
     Indication: HYPERLIPIDAEMIA
     Route: 048
     Dates: start: 20070914, end: 20080403
  2. ZETIA [Suspect]
     Route: 048
     Dates: start: 20080404, end: 20080411
  3. ALFACALCIDOL [Concomitant]
     Route: 065
     Dates: start: 20070903
  4. FLUTICASONE PROPIONATE AND SALMETEROL XINAFOATE [Concomitant]
     Route: 065
     Dates: start: 20070903
  5. HERBS (UNSPECIFIED) [Concomitant]
     Route: 065
     Dates: start: 20070312
  6. SPIRONOLACTONE [Concomitant]
     Route: 065
     Dates: start: 20070903

REACTIONS (2)
  - DIZZINESS [None]
  - LOSS OF CONSCIOUSNESS [None]
